FAERS Safety Report 5063845-3 (Version None)
Quarter: 2006Q3

REPORT INFORMATION
  Report Type: 
  Country: None (occurrence: None)
  Receive Date: 20060726
  Receipt Date: 20060726
  Transmission Date: 20061208
  Serious: Yes (Hospitalization)
  Sender: FDA-Public Use
  Company Number: None

PATIENT
  Sex: Female
  Weight: 59.8748 kg

DRUGS (4)
  1. IMITREX [Suspect]
     Indication: HEADACHE
     Dosage: 1 Q2 HRS PRN PO
     Route: 048
     Dates: start: 20060516, end: 20060520
  2. IMITREX [Suspect]
     Indication: MIGRAINE
     Dosage: 1 Q2 HRS PRN PO
     Route: 048
     Dates: start: 20060516, end: 20060520
  3. ZOLOFT [Suspect]
     Indication: ANXIETY
     Dosage: 1 OD PO
     Route: 048
     Dates: start: 20060301, end: 20060725
  4. ZOLOFT [Suspect]
     Indication: DEPRESSION
     Dosage: 1 OD PO
     Route: 048
     Dates: start: 20060301, end: 20060725

REACTIONS (12)
  - AGITATION [None]
  - ANXIETY DISORDER [None]
  - CONDITION AGGRAVATED [None]
  - CONFUSIONAL STATE [None]
  - DISORIENTATION [None]
  - DIZZINESS [None]
  - FEELING HOT [None]
  - FLUSHING [None]
  - HEADACHE [None]
  - HYPERVENTILATION [None]
  - LOSS OF CONSCIOUSNESS [None]
  - SEROTONIN SYNDROME [None]
